FAERS Safety Report 19249270 (Version 1)
Quarter: 2021Q2

REPORT INFORMATION
  Report Type: Spontaneous
  Country: US (occurrence: US)
  Receive Date: 20210512
  Receipt Date: 20210512
  Transmission Date: 20210717
  Serious: Yes (Other)
  Sender: FDA-Public Use
  Company Number: US-BOIRON INC.-2021BOR00058

PATIENT
  Age: 30 Year
  Sex: Female
  Weight: 44.45 kg

DRUGS (3)
  1. ARNICA MONTANA 30C [Suspect]
     Active Substance: HOMEOPATHICS
     Indication: PAIN
     Dosage: SOMETIMES 5 PELLETS, SOMETIMES 2 PELLETS EVERY AFTERNOON
  2. MULTIVITAMINS [Concomitant]
     Active Substance: VITAMINS
  3. ARNICA MONTANA 30C [Suspect]
     Active Substance: HOMEOPATHICS
     Dosage: 1 PELLET AT 9 AM
     Dates: start: 20210428

REACTIONS (2)
  - Cardiac flutter [Unknown]
  - Palpitations [Not Recovered/Not Resolved]

NARRATIVE: CASE EVENT DATE: 202103
